FAERS Safety Report 25438063 (Version 1)
Quarter: 2025Q2

REPORT INFORMATION
  Report Type: Other
  Country: CA (occurrence: CA)
  Receive Date: 20250616
  Receipt Date: 20250616
  Transmission Date: 20250716
  Serious: Yes (Death, Hospitalization, Other)
  Sender: APOTEX
  Company Number: CA-PGRTD-E2B_07873331

PATIENT
  Age: 29 Year
  Sex: Female

DRUGS (1)
  1. AMBRISENTAN [Suspect]
     Active Substance: AMBRISENTAN
     Indication: Pulmonary arterial hypertension
     Dosage: 10 MILLIGRAM, QD
     Route: 048

REACTIONS (6)
  - Multiple organ dysfunction syndrome [Fatal]
  - Right-to-left cardiac shunt [Fatal]
  - Abdominal compartment syndrome [Fatal]
  - Ovarian cyst ruptured [Fatal]
  - Cardiac arrest [Fatal]
  - Drug ineffective [Fatal]
